FAERS Safety Report 6067462-8 (Version None)
Quarter: 2009Q1

REPORT INFORMATION
  Report Type: 
  Country: None (occurrence: None)
  Receive Date: 20090205
  Receipt Date: 20090126
  Transmission Date: 20090719
  Serious: Yes (Death)
  Sender: FDA-Public Use
  Company Number: US-ELI_LILLY_AND_COMPANY-US200901005351

PATIENT
  Age: 48 Year
  Sex: Female

DRUGS (11)
  1. ZYPREXA [Suspect]
  2. BUPROPION HCL [Concomitant]
  3. VENLAFAXINE HCL [Concomitant]
  4. ACETAMINOPHEN AND HYDROCODONE BITARTRATE [Concomitant]
  5. TRAMADOL HCL [Concomitant]
  6. COCAINE HYDROCHLORIDE [Concomitant]
  7. IRBESARTAN [Concomitant]
  8. HYDROCHLOROTHIAZIDE [Concomitant]
  9. DIPHENOXYLATE HCL AND ATROPINE SULFATE [Concomitant]
  10. QUINAPRIL [Concomitant]
  11. BENZODIAZEPINE DERIVATIVES [Concomitant]

REACTIONS (1)
  - COMPLETED SUICIDE [None]
